FAERS Safety Report 4289978-7 (Version None)
Quarter: 2004Q1

REPORT INFORMATION
  Report Type: 
  Country: None (occurrence: None)
  Receive Date: 20040209
  Receipt Date: 20040205
  Transmission Date: 20041129
  Serious: Yes (Life-Threatening, Hospitalization)
  Sender: FDA-Public Use
  Company Number: BR-ROCHE-358103

PATIENT
  Age: 35 Year
  Sex: Male
  Weight: 62 kg

DRUGS (25)
  1. MYCOPHENOLATE MOFETIL [Suspect]
     Route: 048
     Dates: start: 20030923, end: 20031015
  2. MYCOPHENOLATE MOFETIL [Suspect]
     Route: 048
     Dates: start: 20031016, end: 20031030
  3. MYCOPHENOLATE MOFETIL [Suspect]
     Route: 048
     Dates: start: 20031101, end: 20031115
  4. MYCOPHENOLATE MOFETIL [Suspect]
     Route: 048
     Dates: start: 20031116, end: 20031123
  5. MYCOPHENOLATE MOFETIL [Suspect]
     Route: 048
     Dates: start: 20031124, end: 20031124
  6. MYCOPHENOLATE MOFETIL [Suspect]
     Route: 048
     Dates: start: 20031125
  7. DACLIZUMAB [Suspect]
     Route: 042
     Dates: start: 20030924, end: 20030924
  8. DACLIZUMAB [Suspect]
     Route: 042
     Dates: start: 20031003, end: 20031104
  9. SIROLIMUS [Suspect]
     Route: 048
     Dates: start: 20030923, end: 20030925
  10. SIROLIMUS [Suspect]
     Route: 048
     Dates: start: 20030926, end: 20031003
  11. SIROLIMUS [Suspect]
     Route: 048
     Dates: start: 20031004, end: 20031013
  12. SIROLIMUS [Suspect]
     Route: 048
     Dates: start: 20031014, end: 20031023
  13. SIROLIMUS [Suspect]
     Route: 048
     Dates: start: 20031024, end: 20031105
  14. SIROLIMUS [Suspect]
     Route: 048
     Dates: start: 20031106, end: 20040204
  15. SIROLIMUS [Suspect]
     Route: 048
     Dates: start: 20040205
  16. PREDNISONE [Suspect]
     Route: 048
     Dates: start: 20030926, end: 20031009
  17. PREDNISONE [Suspect]
     Route: 048
     Dates: start: 20031010, end: 20031020
  18. PREDNISONE [Suspect]
     Route: 048
     Dates: start: 20031021, end: 20040109
  19. PREDNISONE [Suspect]
     Route: 048
     Dates: start: 20040110
  20. METHYLPREDNISOLONE [Suspect]
     Route: 042
     Dates: start: 20030923, end: 20030923
  21. METHYLPREDNISOLONE [Suspect]
     Route: 042
     Dates: start: 20030924, end: 20030924
  22. METHYLPREDNISOLONE [Suspect]
     Route: 042
     Dates: start: 20030925, end: 20031003
  23. METHYLPREDNISOLONE [Suspect]
     Route: 042
     Dates: start: 20031004, end: 20031102
  24. METHYLPREDNISOLONE [Suspect]
     Route: 042
     Dates: start: 20031103
  25. ORTHOCLONE OKT3 [Concomitant]
     Dates: start: 20031115, end: 20031124

REACTIONS (2)
  - PNEUMONIA [None]
  - TRANSPLANT REJECTION [None]
